FAERS Safety Report 7349686-2 (Version None)
Quarter: 2011Q1

REPORT INFORMATION
  Report Type: 
  Country: None (occurrence: None)
  Receive Date: 20110309
  Receipt Date: 20110309
  Transmission Date: 20110831
  Serious: Yes (Life-Threatening, Hospitalization)
  Sender: FDA-Public Use
  Company Number: None

PATIENT
  Age: 43 Year
  Sex: Male

DRUGS (1)
  1. OPTIRAY 350 [Suspect]
     Indication: COMPUTERISED TOMOGRAM
     Dosage: OPTIRAY 350 X1 IV
     Route: 042
     Dates: start: 20110303

REACTIONS (6)
  - SNEEZING [None]
  - OCULAR HYPERAEMIA [None]
  - LACRIMATION INCREASED [None]
  - DYSPNOEA [None]
  - NAUSEA [None]
  - THROAT IRRITATION [None]
